FAERS Safety Report 8054786-8 (Version None)
Quarter: 2012Q1

REPORT INFORMATION
  Report Type: 
  Country: None (occurrence: None)
  Receive Date: 20120112
  Receipt Date: 20120106
  Transmission Date: 20120608
  Serious: Yes (Hospitalization, Other)
  Sender: FDA-Public Use
  Company Number: 2012MA000328

PATIENT
  Age: 54 Year
  Sex: Male

DRUGS (6)
  1. IBUPROFEN [Suspect]
     Indication: ARTHRITIS
     Dosage: PO
     Route: 048
     Dates: end: 20110404
  2. CO-DYDRAMOL [Concomitant]
  3. OMEPRAZOLE [Concomitant]
  4. THIAMINE HCL [Concomitant]
  5. AMITRIPTYLINE HCL [Concomitant]
  6. FLUOXETINE [Concomitant]

REACTIONS (2)
  - HELICOBACTER TEST POSITIVE [None]
  - GASTROINTESTINAL HAEMORRHAGE [None]
